FAERS Safety Report 5422539-2 (Version None)
Quarter: 2007Q3

REPORT INFORMATION
  Report Type: 
  Country: None (occurrence: None)
  Receive Date: 20070822
  Receipt Date: 20070821
  Transmission Date: 20080115
  Serious: Yes (Other)
  Sender: FDA-Public Use
  Company Number: FR-JNJFOC-20070802846

PATIENT
  Sex: Female

DRUGS (4)
  1. EPITOMAX [Suspect]
     Route: 048
  2. EPITOMAX [Suspect]
     Indication: MIGRAINE PROPHYLAXIS
     Route: 048
  3. ALMOTRIPTAN MALATE [Concomitant]
     Indication: MIGRAINE
  4. APRANAX [Concomitant]
     Indication: MIGRAINE

REACTIONS (4)
  - ELECTROCARDIOGRAM ABNORMAL [None]
  - IRRITABILITY [None]
  - TACHYCARDIA [None]
  - WEIGHT DECREASED [None]
